FAERS Safety Report 17470159 (Version 1)
Quarter: 2020Q1

REPORT INFORMATION
  Report Type: Spontaneous
  Country: US (occurrence: US)
  Receive Date: 20200227
  Receipt Date: 20200227
  Transmission Date: 20200409
  Serious: Yes (Death, Other)
  Sender: FDA-Public Use
  Company Number: US-GILEAD-2020-0452759

PATIENT
  Sex: Male

DRUGS (3)
  1. POLATUZUMAB VEDOTIN. [Concomitant]
     Active Substance: POLATUZUMAB VEDOTIN
     Indication: LYMPHOMA
  2. YESCARTA [Suspect]
     Active Substance: AXICABTAGENE CILOLEUCEL
     Indication: LYMPHOMA
     Dosage: 1 DOSAGE FORM, ONCE
     Route: 042
  3. BENDAMUSTINE;RITUXIMAB [Concomitant]
     Indication: LYMPHOMA

REACTIONS (1)
  - Cytokine release syndrome [Fatal]
